FAERS Safety Report 4985516-1 (Version None)
Quarter: 2006Q2

REPORT INFORMATION
  Report Type: 
  Country: None (occurrence: None)
  Receive Date: 20060428
  Receipt Date: 20050804
  Transmission Date: 20061013
  Serious: No
  Sender: FDA-Public Use
  Company Number: US-GLAXOSMITHKLINE-A0568960A

PATIENT
  Age: 69 Year
  Sex: Male

DRUGS (8)
  1. FLOVENT [Suspect]
     Indication: ASTHMA
     Dosage: 2PUFF TWICE PER DAY
     Route: 055
     Dates: end: 20050701
  2. SEREVENT [Suspect]
     Indication: ASTHMA
     Route: 055
  3. NORVASC [Concomitant]
  4. AVAPRO [Concomitant]
  5. PROSCAR [Concomitant]
  6. FLOMAX [Concomitant]
  7. SINGULAIR [Concomitant]
  8. ZYRTEC [Concomitant]

REACTIONS (2)
  - MUSCULOSKELETAL STIFFNESS [None]
  - MYALGIA [None]
